FAERS Safety Report 8542303-5 (Version None)
Quarter: 2012Q3

REPORT INFORMATION
  Report Type: 
  Country: None (occurrence: None)
  Receive Date: 20120726
  Receipt Date: 20110720
  Transmission Date: 20120928
  Serious: No
  Sender: FDA-Public Use
  Company Number: US-ASTRAZENECA-2007UW27332

PATIENT
  Age: 5613 Day
  Sex: Male
  Weight: 124.3 kg

DRUGS (2)
  1. SEROQUEL [Suspect]
     Indication: DEPRESSION
     Dosage: 50 MG, 100 MG, 150 MG
     Route: 048
     Dates: start: 20040101, end: 20050101
  2. ALBUTEROL [Concomitant]

REACTIONS (2)
  - LIMB OPERATION [None]
  - DIABETES MELLITUS [None]
